FAERS Safety Report 18968174 (Version 3)
Quarter: 2021Q1

REPORT INFORMATION
  Report Type: Report from Study
  Country: None (occurrence: US)
  Receive Date: 20210304
  Receipt Date: 20210316
  Transmission Date: 20210420
  Serious: Yes (Other)
  Sender: FDA-Public Use
  Company Number: US-ABBVIE-21K-163-3715556-00

PATIENT
  Sex: Female
  Weight: 68.1 kg

DRUGS (3)
  1. HUMIRA [Suspect]
     Active Substance: ADALIMUMAB
     Indication: RHEUMATOID ARTHRITIS
     Dosage: CITRATE FREE
     Route: 058
     Dates: start: 2017, end: 202008
  2. COVID?19 VACCINE [Concomitant]
     Indication: COVID-19 IMMUNISATION
     Route: 030
     Dates: start: 202102, end: 202102
  3. COVID?19 VACCINE [Concomitant]
     Route: 030
     Dates: start: 202103, end: 202103

REACTIONS (10)
  - Spinal osteoarthritis [Recovered/Resolved]
  - Mobility decreased [Recovering/Resolving]
  - Eye disorder [Unknown]
  - Intervertebral disc degeneration [Recovered/Resolved]
  - Rheumatoid arthritis [Unknown]
  - Retinitis [Recovering/Resolving]
  - Pneumothorax [Unknown]
  - Aphasia [Recovered/Resolved]
  - Illness [Unknown]
  - Atypical pneumonia [Recovered/Resolved]

NARRATIVE: CASE EVENT DATE: 2019
